FAERS Safety Report 16163645 (Version 1)
Quarter: 2019Q2

REPORT INFORMATION
  Report Type: Spontaneous
  Country: US (occurrence: US)
  Receive Date: 20190405
  Receipt Date: 20190405
  Transmission Date: 20190711
  Serious: Yes (Death, Other)
  Sender: FDA-Public Use
  Company Number: US-PFIZER INC-2019142947

PATIENT
  Age: 76 Year
  Sex: Female
  Weight: 104.33 kg

DRUGS (1)
  1. LYRICA [Suspect]
     Active Substance: PREGABALIN
     Indication: NEUROPATHY PERIPHERAL
     Dosage: 200 MG, 2X/DAY (TWICE DAILY MORNING AND NIGHT  )
     Route: 048

REACTIONS (3)
  - Thrombocytopenia [Fatal]
  - Sepsis [Fatal]
  - Pulmonary fibrosis [Fatal]
